FAERS Safety Report 5877881-8 (Version None)
Quarter: 2008Q3

REPORT INFORMATION
  Report Type: 
  Country: None (occurrence: None)
  Receive Date: 20080911
  Receipt Date: 20080909
  Transmission Date: 20090109
  Serious: Yes (Other)
  Sender: FDA-Public Use
  Company Number: US-RB-003082-08

PATIENT
  Age: 28 Year
  Sex: Female

DRUGS (4)
  1. SUBOXONE [Suspect]
     Route: 060
     Dates: start: 20080118, end: 20080118
  2. SUBOXONE [Suspect]
     Route: 060
     Dates: start: 20080119, end: 20080301
  3. SUBOXONE [Suspect]
     Dosage: TAKEN VARYING DOSES UNTIL DISCONTINUING ON 05-AUG-2008
     Route: 060
     Dates: start: 20080301, end: 20080805
  4. XANAX [Concomitant]
     Indication: ANXIETY DISORDER
     Route: 048

REACTIONS (2)
  - LOSS OF CONSCIOUSNESS [None]
  - WITHDRAWAL SYNDROME [None]
